FAERS Safety Report 8009346-1 (Version None)
Quarter: 2011Q4

REPORT INFORMATION
  Report Type: 
  Country: None (occurrence: None)
  Receive Date: 20111227
  Receipt Date: 20111214
  Transmission Date: 20120403
  Serious: Yes (Other)
  Sender: FDA-Public Use
  Company Number: PHHY2011NL110783

PATIENT
  Sex: Female

DRUGS (1)
  1. LETROZOLE [Suspect]

REACTIONS (1)
  - RESPIRATORY DISORDER [None]
